FAERS Safety Report 4531117-9 (Version None)
Quarter: 2004Q4

REPORT INFORMATION
  Report Type: 
  Country: None (occurrence: None)
  Receive Date: 20041215
  Receipt Date: 20041209
  Transmission Date: 20050328
  Serious: Yes (Death)
  Sender: FDA-Public Use
  Company Number: A044-002-005333

PATIENT
  Age: 90 Year
  Sex: Female

DRUGS (8)
  1. ARICEPT [Suspect]
     Indication: DEMENTIA
     Dosage: 10 MG, 1 IN 1 D, ORAL
     Route: 048
     Dates: start: 20020401, end: 20041109
  2. MIRTAZAPINE [Suspect]
     Indication: DEPRESSION
     Dosage: 15 MG, 1 IN 1 D, ORAL
     Route: 048
     Dates: start: 20030213, end: 20041109
  3. DICLOFENAC SODIUM [Concomitant]
  4. OMEPRAZOLE [Concomitant]
  5. ROFECOXIB [Concomitant]
  6. FERROUS SULPHATE ANHYDROUS (FERROUS SULFATE) [Concomitant]
  7. CO-PROXAMOL (APOREX) [Concomitant]
  8. MICRALAX (MICROLAX) [Concomitant]

REACTIONS (9)
  - CEREBROVASCULAR ACCIDENT [None]
  - DEMENTIA [None]
  - IDIOPATHIC THROMBOCYTOPENIC PURPURA [None]
  - LEUKAEMIA PLASMACYTIC [None]
  - LYMPHOMA [None]
  - PARAPROTEINAEMIA [None]
  - RED BLOOD CELL ABNORMALITY [None]
  - RENAL FAILURE [None]
  - VIRAL INFECTION [None]
